FAERS Safety Report 10218479 (Version 1)
Quarter: 2014Q2

REPORT INFORMATION
  Report Type: Spontaneous
  Country: FR (occurrence: FR)
  Receive Date: 20140605
  Receipt Date: 20140605
  Transmission Date: 20141212
  Serious: Yes (Death)
  Sender: FDA-Public Use
  Company Number: FR-MYLANLABS-2014S1012607

PATIENT
  Age: 60 Year
  Sex: Female

DRUGS (13)
  1. QUETIAPINE [Suspect]
     Indication: COMPLETED SUICIDE
     Route: 048
  2. QUETIAPINE [Suspect]
     Indication: OFF LABEL USE
     Route: 048
  3. ZOPICLONE [Suspect]
     Indication: COMPLETED SUICIDE
     Route: 048
  4. ZOPICLONE [Suspect]
     Indication: OFF LABEL USE
     Route: 048
  5. BROMAZEPAM [Suspect]
     Indication: COMPLETED SUICIDE
     Route: 048
  6. BROMAZEPAM [Suspect]
     Indication: OFF LABEL USE
     Route: 048
  7. OXAZEPAM [Suspect]
     Indication: COMPLETED SUICIDE
     Route: 048
  8. ALPRAZOLAM [Suspect]
     Indication: COMPLETED SUICIDE
     Route: 048
  9. ALPRAZOLAM [Suspect]
     Indication: OFF LABEL USE
     Route: 048
  10. LORMETAZEPAM [Suspect]
     Indication: COMPLETED SUICIDE
     Route: 048
  11. LORAZEPAM [Suspect]
     Indication: COMPLETED SUICIDE
     Route: 048
  12. LORAZEPAM [Suspect]
     Indication: OFF LABEL USE
     Route: 048
  13. CYAMEMAZINE [Suspect]
     Indication: COMPLETED SUICIDE
     Route: 048

REACTIONS (3)
  - Completed suicide [Fatal]
  - Overdose [Fatal]
  - Toxicity to various agents [Fatal]
